FAERS Safety Report 9725384 (Version 1)
Quarter: 2013Q4

REPORT INFORMATION
  Report Type: Spontaneous
  Country: BR (occurrence: BR)
  Receive Date: 20131203
  Receipt Date: 20131203
  Transmission Date: 20140711
  Serious: Yes (Hospitalization, Other)
  Sender: FDA-Public Use
  Company Number: BR-SA-2013SA122531

PATIENT
  Sex: Male
  Weight: 66.2 kg

DRUGS (3)
  1. LANTUS [Suspect]
     Indication: TYPE 2 DIABETES MELLITUS
     Route: 058
     Dates: start: 201112
  2. DEVICE NOS [Concomitant]
     Indication: DEVICE THERAPY
     Dates: start: 20131101
  3. CLIKSTAR [Concomitant]
     Indication: DEVICE THERAPY
     Dates: start: 201112, end: 20131101

REACTIONS (7)
  - Pancreatic carcinoma [Unknown]
  - Cholecystectomy [Unknown]
  - Duodenectomy [Unknown]
  - Nausea [Recovering/Resolving]
  - Abdominal pain [Recovering/Resolving]
  - Injection site discomfort [Unknown]
  - Injection site pain [Unknown]
